FAERS Safety Report 6306385-3 (Version None)
Quarter: 2009Q3

REPORT INFORMATION
  Report Type: 
  Country: None (occurrence: None)
  Receive Date: 20090812
  Receipt Date: 20090806
  Transmission Date: 20100115
  Serious: Yes (Other)
  Sender: FDA-Public Use
  Company Number: US-ELI_LILLY_AND_COMPANY-US200908001477

PATIENT
  Sex: Female

DRUGS (2)
  1. HUMALOG [Suspect]
     Dosage: UNK, UNK
     Dates: start: 20080301
  2. BYETTA [Concomitant]
     Dates: start: 20080101, end: 20080101

REACTIONS (7)
  - ABDOMINAL PAIN [None]
  - CATARACT [None]
  - EYE HAEMORRHAGE [None]
  - EYE SWELLING [None]
  - NAUSEA [None]
  - PANCREATITIS [None]
  - VISUAL ACUITY REDUCED [None]
